FAERS Safety Report 13671712 (Version 1)
Quarter: 2017Q2

REPORT INFORMATION
  Report Type: Spontaneous
  Country: US (occurrence: US)
  Receive Date: 20170620
  Receipt Date: 20170620
  Transmission Date: 20170830
  Serious: No
  Sender: FDA-Public Use
  Company Number: None

PATIENT
  Age: 49 Year
  Sex: Female

DRUGS (2)
  1. EPCLUSA [Suspect]
     Active Substance: SOFOSBUVIR\VELPATASVIR
     Indication: HEPATITIS C
     Dosage: DOSE - 400/100MG
     Route: 048
     Dates: start: 20170417, end: 20170522
  2. RIBAVIRIN 200 MG TEVA [Suspect]
     Active Substance: RIBAVIRIN
     Indication: HEPATITIS C
     Route: 048
     Dates: start: 20170417, end: 20170522

REACTIONS (2)
  - Vomiting [None]
  - Pruritus [None]

NARRATIVE: CASE EVENT DATE: 20170526
